FAERS Safety Report 25571685 (Version 1)
Quarter: 2025Q3

REPORT INFORMATION
  Report Type: Spontaneous
  Country: US (occurrence: None)
  Receive Date: 20250717
  Receipt Date: 20250717
  Transmission Date: 20251020
  Serious: Yes (Hospitalization)
  Sender: FDA-CTU
  Company Number: None

PATIENT
  Age: 60 Year
  Sex: Female
  Weight: 55.02 kg

DRUGS (2)
  1. XELODA [Suspect]
     Active Substance: CAPECITABINE
     Dates: end: 20250701
  2. ELOXATIN [Suspect]
     Active Substance: OXALIPLATIN
     Dates: end: 20250701

REACTIONS (5)
  - Enteritis [None]
  - Small intestinal obstruction [None]
  - Gastrointestinal inflammation [None]
  - Gastrointestinal infection [None]
  - Atrial fibrillation [None]

NARRATIVE: CASE EVENT DATE: 20250711
